FAERS Safety Report 9860066 (Version 1)
Quarter: 2014Q1

REPORT INFORMATION
  Report Type: Spontaneous
  Country: CN (occurrence: CN)
  Receive Date: 20140131
  Receipt Date: 20140131
  Transmission Date: 20141002
  Serious: Yes (Hospitalization)
  Sender: FDA-Public Use
  Company Number: CN-ROCHE-1339828

PATIENT
  Age: 49 Year
  Sex: Female

DRUGS (3)
  1. AVASTIN [Suspect]
     Indication: RECTAL CANCER
     Route: 042
  2. XELODA [Suspect]
     Indication: RECTAL CANCER
     Route: 065
  3. OXALIPLATIN [Concomitant]

REACTIONS (1)
  - Anastomotic fistula [Recovering/Resolving]
